FAERS Safety Report 9133147 (Version 1)
Quarter: 2013Q1

REPORT INFORMATION
  Report Type: Spontaneous
  Country: US (occurrence: US)
  Receive Date: 20130126
  Receipt Date: 20130126
  Transmission Date: 20140127
  Serious: No
  Sender: FDA-Public Use
  Company Number: US-009507513-1301USA009326

PATIENT
  Sex: Male

DRUGS (11)
  1. SIMVASTATIN [Suspect]
     Dosage: 20 MG,
  2. AMITRIPTYLINE HYDROCHLORIDE [Suspect]
  3. CLOPIDOGREL [Concomitant]
     Dosage: 75 MG, UNK
  4. CITALOPRAM [Concomitant]
     Dosage: 40 MG, UNK
  5. ZOLPIDEM TARTRATE [Concomitant]
  6. FIORICET [Concomitant]
  7. NIACIN TR [Concomitant]
  8. HYDROCODONE [Concomitant]
  9. AMBIEN [Concomitant]
  10. PLAVIX [Concomitant]
     Indication: ANTICOAGULANT THERAPY
  11. PRILOSEC [Concomitant]
     Indication: GASTRIC DISORDER

REACTIONS (3)
  - Feeling abnormal [Unknown]
  - Aversion [Unknown]
  - Asthenia [Unknown]
